FAERS Safety Report 5160000-3 (Version None)
Quarter: 2006Q4

REPORT INFORMATION
  Report Type: 
  Country: None (occurrence: None)
  Receive Date: 20061129
  Receipt Date: 20060606
  Transmission Date: 20070319
  Serious: No
  Sender: FDA-Public Use
  Company Number: US-GLAXOSMITHKLINE-A0608067A

PATIENT
  Sex: Female

DRUGS (4)
  1. BUPROPION HCL [Suspect]
     Dosage: 150MG TWICE PER DAY
     Route: 048
     Dates: start: 20060509, end: 20060501
  2. WELLBUTRIN XL [Suspect]
     Dosage: 300MG UNKNOWN
     Route: 048
     Dates: start: 20060101, end: 20060101
  3. LIPITOR [Concomitant]
  4. ASPIRIN [Concomitant]

REACTIONS (5)
  - AGITATION [None]
  - DRUG INEFFECTIVE [None]
  - MOOD SWINGS [None]
  - NIGHTMARE [None]
  - PSYCHOMOTOR HYPERACTIVITY [None]
